FAERS Safety Report 13357871 (Version 3)
Quarter: 2018Q4

REPORT INFORMATION
  Report Type: Spontaneous
  Country: US (occurrence: US)
  Receive Date: 20170322
  Receipt Date: 20181126
  Transmission Date: 20190204
  Serious: No
  Sender: FDA-Public Use
  Company Number: US-PFIZER INC-2017116464

PATIENT
  Age: 66 Year
  Sex: Female
  Weight: 91 kg

DRUGS (9)
  1. METHOTREXATE. [Suspect]
     Active Substance: METHOTREXATE
     Dosage: 3 DF, WEEKLY
     Route: 048
  2. MELOXICAM. [Concomitant]
     Active Substance: MELOXICAM
     Indication: PAIN
     Dosage: 15 MG, DAILY
     Dates: start: 2015
  3. XELJANZ XR [Suspect]
     Active Substance: TOFACITINIB CITRATE
     Indication: RHEUMATOID ARTHRITIS
     Dosage: 11 MG, 1X/DAY
     Route: 048
     Dates: start: 2017
  4. XELJANZ XR [Suspect]
     Active Substance: TOFACITINIB CITRATE
     Dosage: 11 MG, 1X/DAY [ONE EVERY MORNING]
     Route: 048
  5. DULOXETINE. [Concomitant]
     Active Substance: DULOXETINE
     Indication: PAIN
     Dosage: 60 MG, DAILY
     Dates: start: 201101
  6. OMEPRAZOLE. [Concomitant]
     Active Substance: OMEPRAZOLE
     Indication: GASTRIC DISORDER
     Dosage: 40 MG, DAILY
     Dates: start: 2015
  7. METHOTREXATE. [Suspect]
     Active Substance: METHOTREXATE
     Indication: RHEUMATOID ARTHRITIS
     Dosage: 9 DF, WEEKLY
     Route: 048
     Dates: start: 201101
  8. FOLIC ACID. [Concomitant]
     Active Substance: FOLIC ACID
     Dosage: 1 MG, DAILY (EXCEPT THE DAY SHE TAKES METHOTREXATE)
     Dates: start: 201101
  9. DULOXETINE. [Concomitant]
     Active Substance: DULOXETINE
     Indication: ANTIDEPRESSANT THERAPY

REACTIONS (6)
  - Dry eye [Unknown]
  - Pain [Unknown]
  - Condition aggravated [Recovering/Resolving]
  - Inflammation [Recovered/Resolved]
  - Musculoskeletal stiffness [Unknown]
  - Neuralgia [Recovering/Resolving]

NARRATIVE: CASE EVENT DATE: 2017
